FAERS Safety Report 19087639 (Version 1)
Quarter: 2021Q2

REPORT INFORMATION
  Report Type: Spontaneous
  Country: FR (occurrence: FR)
  Receive Date: 20210402
  Receipt Date: 20210402
  Transmission Date: 20210717
  Serious: Yes (Death)
  Sender: FDA-Public Use
  Company Number: FR-JNJFOC-20210351175

PATIENT
  Age: 51 Year
  Sex: Male

DRUGS (1)
  1. SPRAVATO [Suspect]
     Active Substance: ESKETAMINE
     Indication: PRODUCT USED FOR UNKNOWN INDICATION
     Dates: start: 20210222

REACTIONS (2)
  - Sedation [Unknown]
  - Completed suicide [Fatal]

NARRATIVE: CASE EVENT DATE: 20210321
